FAERS Safety Report 5419157-9 (Version None)
Quarter: 2007Q3

REPORT INFORMATION
  Report Type: 
  Country: None (occurrence: None)
  Receive Date: 20070816
  Receipt Date: 20070816
  Transmission Date: 20080115
  Serious: Yes (Other)
  Sender: FDA-Public Use
  Company Number: None

PATIENT
  Age: 44 Year
  Sex: Female
  Weight: 140.1615 kg

DRUGS (1)
  1. BUDEPRION XL 300 MG. TEVA [Suspect]
     Indication: DEPRESSION
     Dosage: 1 TAB.  1X DAILY  PO
     Route: 048
     Dates: start: 20070504, end: 20070815

REACTIONS (6)
  - DIZZINESS [None]
  - INSOMNIA [None]
  - IRRITABILITY [None]
  - NIGHT SWEATS [None]
  - PHARMACEUTICAL PRODUCT COMPLAINT [None]
  - THERAPEUTIC RESPONSE UNEXPECTED WITH DRUG SUBSTITUTION [None]
